FAERS Safety Report 4602228-4 (Version None)
Quarter: 2005Q2

REPORT INFORMATION
  Report Type: 
  Country: None (occurrence: None)
  Receive Date: 20050216
  Receipt Date: 20040506
  Transmission Date: 20051028
  Serious: Yes (Other)
  Sender: FDA-Public Use
  Company Number: 2004031498

PATIENT
  Age: 11 Month
  Sex: Male
  Weight: 9.5255 kg

DRUGS (3)
  1. ZANTAC 75 [Suspect]
     Indication: GASTROOESOPHAGEAL REFLUX DISEASE
     Dosage: UP TO 25 MG BID TO TID, ORAL
     Route: 048
  2. VITAMINS (VITAMINS) [Concomitant]
  3. IBUPROFEN [Concomitant]

REACTIONS (2)
  - MOTOR DYSFUNCTION [None]
  - OVERDOSE [None]
